FAERS Safety Report 10994644 (Version 2)
Quarter: 2015Q3

REPORT INFORMATION
  Report Type: Spontaneous
  Country: US (occurrence: US)
  Receive Date: 20150407
  Receipt Date: 20150904
  Transmission Date: 20151125
  Serious: Yes (Hospitalization)
  Sender: FDA-Public Use
  Company Number: US-BAYER-2015-113425

PATIENT
  Age: 33 Year
  Sex: Female
  Weight: 63.49 kg

DRUGS (4)
  1. XANAX [Concomitant]
     Active Substance: ALPRAZOLAM
  2. CELEXA [Concomitant]
     Active Substance: CITALOPRAM HYDROBROMIDE
  3. SPIRONOLACTONE. [Concomitant]
     Active Substance: SPIRONOLACTONE
  4. MIRENA [Suspect]
     Active Substance: LEVONORGESTREL
     Indication: CONTRACEPTION
     Dosage: 20 MCG/24HR, CONT
     Route: 015
     Dates: start: 20080421, end: 20130726

REACTIONS (13)
  - Dizziness [None]
  - Depression [Not Recovered/Not Resolved]
  - Device issue [None]
  - Anxiety [Not Recovered/Not Resolved]
  - Back pain [None]
  - Uterine perforation [None]
  - Pain [None]
  - Abdominal pain lower [None]
  - Medication error [None]
  - Device dislocation [None]
  - Injury [None]
  - Emotional distress [None]
  - Headache [None]

NARRATIVE: CASE EVENT DATE: 200912
